FAERS Safety Report 9783919 (Version 1)
Quarter: 2013Q4

REPORT INFORMATION
  Report Type: Spontaneous
  Country: US (occurrence: US)
  Receive Date: 20131226
  Receipt Date: 20131226
  Transmission Date: 20140711
  Serious: No
  Sender: FDA-Public Use
  Company Number: US-PFIZER INC-2013364347

PATIENT
  Sex: Male

DRUGS (2)
  1. ADVIL PM [Suspect]
     Indication: SLEEP DISORDER
     Dosage: 2 DOSAGE FORM, UNK
  2. ADVIL PM [Suspect]
     Indication: ACCIDENT AT WORK
     Dosage: 4 DOSAGE FORM, ONCE A DAY (AT NIGHT)

REACTIONS (2)
  - Overdose [Unknown]
  - Drug ineffective [Unknown]
